FAERS Safety Report 10004029 (Version 2)
Quarter: 2014Q2

REPORT INFORMATION
  Report Type: Spontaneous
  Country: US (occurrence: US)
  Receive Date: 20140312
  Receipt Date: 20140414
  Transmission Date: 20141212
  Serious: Yes (Other)
  Sender: FDA-Public Use
  Company Number: US-TEVA-467952USA

PATIENT
  Age: 47 Year
  Sex: Female
  Weight: 80.36 kg

DRUGS (2)
  1. PARAGARD 380A [Suspect]
     Indication: CONTRACEPTION
     Route: 015
     Dates: start: 2006, end: 20140226
  2. RELPAX [Concomitant]
     Indication: MIGRAINE
     Route: 048

REACTIONS (3)
  - Embedded device [Recovered/Resolved]
  - Device breakage [Recovered/Resolved]
  - Back pain [Unknown]
